FAERS Safety Report 10184052 (Version 1)
Quarter: 2014Q2

REPORT INFORMATION
  Report Type: Report from Study
  Country: US (occurrence: US)
  Receive Date: 20140520
  Receipt Date: 20140520
  Transmission Date: 20141212
  Serious: Yes (Other)
  Sender: FDA-Public Use
  Company Number: US-BRISTOL-MYERS SQUIBB COMPANY-20732814

PATIENT
  Age: 63 Year
  Sex: Male

DRUGS (2)
  1. ELIQUIS [Suspect]
     Indication: CEREBROVASCULAR ACCIDENT PROPHYLAXIS
     Dates: start: 201403
  2. DIGOXIN [Concomitant]

REACTIONS (1)
  - Parkinson^s disease [Unknown]
